APPROVED DRUG PRODUCT: EZETIMIBE
Active Ingredient: EZETIMIBE
Strength: 10MG
Dosage Form/Route: TABLET;ORAL
Application: A215693 | Product #001 | TE Code: AB
Applicant: ORIENT PHARMA CO LTD
Approved: Sep 13, 2022 | RLD: No | RS: No | Type: RX